FAERS Safety Report 13009538 (Version 1)
Quarter: 2016Q4

REPORT INFORMATION
  Report Type: Spontaneous
  Country: US (occurrence: US)
  Receive Date: 20161208
  Receipt Date: 20161208
  Transmission Date: 20170207
  Serious: No
  Sender: FDA-Public Use
  Company Number: US-PERRIGO-16US021173

PATIENT
  Age: 36 Year
  Sex: Female
  Weight: 72.56 kg

DRUGS (1)
  1. MINOXIDIL. [Suspect]
     Active Substance: MINOXIDIL
     Indication: ALOPECIA
     Dosage: 1 ML, QD
     Route: 061
     Dates: start: 20161013, end: 20161019

REACTIONS (9)
  - Application site irritation [Not Recovered/Not Resolved]
  - Inappropriate schedule of drug administration [Recovered/Resolved]
  - Application site erythema [Not Recovered/Not Resolved]
  - Ear pain [Recovering/Resolving]
  - Drug administered at inappropriate site [Recovered/Resolved]
  - Application site paraesthesia [Not Recovered/Not Resolved]
  - Alopecia [Recovering/Resolving]
  - Application site urticaria [Not Recovered/Not Resolved]
  - Application site pain [Not Recovered/Not Resolved]

NARRATIVE: CASE EVENT DATE: 20161013
